FAERS Safety Report 8990173 (Version 1)
Quarter: 2012Q4

REPORT INFORMATION
  Report Type: 
  Country: US (occurrence: US)
  Receive Date: 20121228
  Receipt Date: 20121228
  Transmission Date: 20130627
  Serious: No
  Sender: FDA-Public Use
  Company Number: US-PFIZER INC-2012331132

PATIENT
  Sex: Male

DRUGS (1)
  1. ATORVASTATIN CALCIUM [Suspect]
     Indication: HIGH CHOLESTEROL
     Dosage: UNK

REACTIONS (3)
  - Muscular weakness [Unknown]
  - Dizziness [Unknown]
  - Influenza like illness [Unknown]
